FAERS Safety Report 8742826 (Version 3)
Quarter: 2018Q4

REPORT INFORMATION
  Report Type: Spontaneous
  Country: FR (occurrence: FR)
  Receive Date: 20120824
  Receipt Date: 20181026
  Transmission Date: 20190205
  Serious: Yes (Hospitalization, Other)
  Sender: FDA-Public Use
  Company Number: FR-UCBSA-064068

PATIENT
  Age: 39 Year
  Sex: Male

DRUGS (3)
  1. MALOCIDE (PYRIMETHAMINE) [Suspect]
     Active Substance: PYRIMETHAMINE
     Indication: CEREBRAL TOXOPLASMOSIS
     Dosage: 50 MG TABLET
     Route: 048
     Dates: start: 20120515, end: 20120525
  2. KEPPRA [Suspect]
     Active Substance: LEVETIRACETAM
     Indication: EPILEPSY
     Dosage: UNK
     Dates: start: 20120515, end: 20120525
  3. ADIAZINE [Suspect]
     Active Substance: SULFADIAZINE
     Indication: CEREBRAL TOXOPLASMOSIS
     Dosage: 500 MG
     Route: 048
     Dates: start: 20120515, end: 20120525

REACTIONS (3)
  - Stevens-Johnson syndrome [Recovering/Resolving]
  - Blood creatinine increased [Unknown]
  - Hepatocellular injury [Recovered/Resolved]

NARRATIVE: CASE EVENT DATE: 2012
